FAERS Safety Report 5980483-6 (Version None)
Quarter: 2008Q4

REPORT INFORMATION
  Report Type: 
  Country: None (occurrence: None)
  Receive Date: 20081205
  Receipt Date: 20080103
  Transmission Date: 20090506
  Serious: No
  Sender: FDA-Public Use
  Company Number: A0701182A

PATIENT
  Age: 50 Year
  Sex: Male

DRUGS (4)
  1. COMMIT [Suspect]
     Dates: start: 20061101
  2. NICODERM CQ [Suspect]
     Dates: start: 20060501
  3. NICODERM CQ [Suspect]
     Dates: start: 20060501
  4. NICODERM CQ [Suspect]
     Dates: start: 20060501

REACTIONS (2)
  - INTENTIONAL DRUG MISUSE [None]
  - NIGHTMARE [None]
